FAERS Safety Report 11125171 (Version 7)
Quarter: 2015Q3

REPORT INFORMATION
  Report Type: Spontaneous
  Country: US (occurrence: US)
  Receive Date: 20150520
  Receipt Date: 20150921
  Transmission Date: 20151125
  Serious: Yes (Other)
  Sender: FDA-Public Use
  Company Number: US-PFIZER INC-2015167754

PATIENT
  Age: 71 Year
  Sex: Female
  Weight: 77 kg

DRUGS (7)
  1. HCQ [Concomitant]
     Active Substance: HYDROXYCHLOROQUINE SULFATE
     Indication: RHEUMATOID ARTHRITIS
     Dosage: 200 MG, BID
     Dates: start: 2007
  2. PREDNISONE. [Suspect]
     Active Substance: PREDNISONE
     Dosage: 60 MG, DAILY
     Route: 048
  3. XELJANZ [Suspect]
     Active Substance: TOFACITINIB CITRATE
     Indication: RHEUMATOID ARTHRITIS
     Dosage: 5 MG, BID
     Route: 048
     Dates: start: 201502
  4. PREDNISONE. [Suspect]
     Active Substance: PREDNISONE
     Indication: RHEUMATOID ARTHRITIS
     Dosage: 10 MG, DAILY
     Route: 048
  5. PREDNISONE. [Suspect]
     Active Substance: PREDNISONE
     Dosage: 20 MG, DAILY
     Route: 048
  6. PLAQUENIL [Concomitant]
     Active Substance: HYDROXYCHLOROQUINE SULFATE
     Indication: ARTHRITIS
     Dosage: 200 MG, 2X/DAY
     Route: 048
  7. ACCUPRIL [Concomitant]
     Active Substance: QUINAPRIL HYDROCHLORIDE
     Dosage: 30 MG, DAILY
     Route: 048

REACTIONS (14)
  - Cough [Unknown]
  - Atelectasis [Unknown]
  - Fungal infection [Recovering/Resolving]
  - Pneumonia [Recovering/Resolving]
  - Atypical pneumonia [Unknown]
  - Rash [Recovered/Resolved]
  - Drug ineffective [Unknown]
  - Lung infection [Unknown]
  - Nasopharyngitis [Unknown]
  - Urinary tract infection [Recovering/Resolving]
  - Rib fracture [Unknown]
  - Skin lesion [Recovered/Resolved]
  - Chronic obstructive pulmonary disease [Recovered/Resolved]
  - Abdominal pain upper [Unknown]

NARRATIVE: CASE EVENT DATE: 201505
